FAERS Safety Report 21600714 (Version 3)
Quarter: 2022Q4

REPORT INFORMATION
  Report Type: Report from Study
  Country: KR (occurrence: KR)
  Receive Date: 20221116
  Receipt Date: 20221215
  Transmission Date: 20230113
  Serious: Yes (Death, Hospitalization)
  Sender: FDA-Public Use
  Company Number: KR-JNJFOC-20221123781

PATIENT
  Age: 71 Year
  Sex: Female
  Weight: 51 kg

DRUGS (50)
  1. ESKETAMINE [Suspect]
     Active Substance: ESKETAMINE
     Indication: Depression
     Dates: start: 20170705, end: 20220919
  2. ASTRAZENECA COVID-19 VACCINE [Concomitant]
     Active Substance: AZD-1222
     Indication: COVID-19 prophylaxis
     Route: 030
     Dates: start: 20210527, end: 20210527
  3. ASTRAZENECA COVID-19 VACCINE [Concomitant]
     Active Substance: AZD-1222
     Route: 030
     Dates: start: 20210802, end: 20210802
  4. PILOGEN [Concomitant]
     Indication: Xerophthalmia
     Route: 048
     Dates: start: 20060101, end: 20171011
  5. PILOGEN [Concomitant]
     Route: 048
     Dates: start: 20180130, end: 20180729
  6. PILOGEN [Concomitant]
     Route: 048
     Dates: start: 20180730
  7. RHEUMIDE [Concomitant]
     Indication: Rheumatoid arthritis
     Dosage: 01-UNK-2006
     Route: 048
     Dates: start: 2006, end: 20171011
  8. PREDNISOLONE [Concomitant]
     Active Substance: PREDNISOLONE
     Indication: Rheumatoid arthritis
     Dosage: 01-UNK-2006
     Route: 048
     Dates: start: 2006, end: 20171011
  9. CRESTOR [Concomitant]
     Active Substance: ROSUVASTATIN CALCIUM
     Indication: Hyperlipidaemia
     Route: 048
     Dates: start: 20100101, end: 20171012
  10. ATIVAN [Concomitant]
     Active Substance: LORAZEPAM
     Indication: Anxiety
     Route: 048
     Dates: start: 20160506, end: 20171012
  11. DULOXETINE [Concomitant]
     Active Substance: DULOXETINE
     Indication: Depression
     Route: 048
     Dates: start: 20160622
  12. ACECLOFENAC [Concomitant]
     Active Substance: ACECLOFENAC
     Indication: Rheumatoid arthritis
     Route: 048
     Dates: start: 20171012, end: 20171015
  13. HYDROXYCHLOROQUINE SULFATE [Concomitant]
     Active Substance: HYDROXYCHLOROQUINE SULFATE
     Indication: Rheumatoid arthritis
     Route: 048
     Dates: start: 20171012, end: 20180129
  14. OROSARTAN [Concomitant]
     Indication: Hypertension
     Route: 048
     Dates: start: 20161024, end: 20171012
  15. REBAMIPIDE [Concomitant]
     Active Substance: REBAMIPIDE
     Indication: Chronic gastritis
     Route: 048
     Dates: start: 20171012, end: 20171015
  16. PREDNISOLONE [Concomitant]
     Active Substance: PREDNISOLONE
     Indication: Rheumatoid arthritis
     Route: 048
     Dates: start: 20171012, end: 20171015
  17. METHOTREXATE [Concomitant]
     Active Substance: METHOTREXATE
     Indication: Rheumatoid arthritis
     Route: 048
     Dates: start: 20171012, end: 20171017
  18. METHOTREXATE [Concomitant]
     Active Substance: METHOTREXATE
     Route: 048
     Dates: start: 20171116, end: 20171125
  19. METHOTREXATE [Concomitant]
     Active Substance: METHOTREXATE
     Route: 048
     Dates: start: 20190122
  20. FOLIC ACID [Concomitant]
     Active Substance: FOLIC ACID
     Indication: Rheumatoid arthritis
     Route: 048
     Dates: start: 20171012, end: 20180115
  21. FOLIC ACID [Concomitant]
     Active Substance: FOLIC ACID
     Route: 048
     Dates: start: 20190122, end: 20200816
  22. CALCIUM CARBONATE\CHOLECALCIFEROL [Concomitant]
     Active Substance: CALCIUM CARBONATE\CHOLECALCIFEROL
     Indication: Osteoporosis
     Route: 048
     Dates: start: 20171012, end: 20180129
  23. PILOCARPINE HYDROCHLORIDE [Concomitant]
     Active Substance: PILOCARPINE HYDROCHLORIDE
     Indication: Sjogren^s syndrome
     Route: 048
     Dates: start: 20171012, end: 20180115
  24. CANDEMORE [Concomitant]
     Indication: Hypertension
     Route: 048
     Dates: start: 20171019, end: 20211112
  25. CETAMADOL [Concomitant]
     Indication: Large intestinal ulcer
     Route: 048
     Dates: start: 20171116, end: 20180222
  26. FERROUS SULFATE\PROTEASE [Concomitant]
     Active Substance: FERROUS SULFATE\PROTEASE
     Indication: Iron deficiency anaemia
     Route: 048
     Dates: start: 20171116, end: 20180115
  27. COOLPREP [Concomitant]
     Indication: Colonoscopy
     Route: 048
     Dates: start: 20171126, end: 20171126
  28. MIDAZOLAM [Concomitant]
     Active Substance: MIDAZOLAM
     Indication: Colonoscopy
     Dosage: INTRAVENOUS
     Dates: start: 20171127, end: 20171127
  29. MEPERIDINE HYDROCHLORIDE [Concomitant]
     Active Substance: MEPERIDINE HYDROCHLORIDE
     Indication: Colonoscopy
     Dosage: INTRAVENOUS
     Dates: start: 20171127, end: 20171127
  30. SIMETHICONE (DIMETHICONE) [Concomitant]
     Active Substance: DIMETHICONE
     Indication: Colonoscopy
     Route: 048
     Dates: start: 20171127, end: 20171127
  31. CIMETROPIUM [Concomitant]
     Active Substance: CIMETROPIUM
     Indication: Colonoscopy
     Dosage: INTRAVENOUS
     Dates: start: 20171127, end: 20171127
  32. LIDOCAINE [Concomitant]
     Active Substance: LIDOCAINE
     Indication: Colonoscopy
     Route: 054
     Dates: start: 20171127, end: 20171127
  33. CELEBREX [Concomitant]
     Active Substance: CELECOXIB
     Indication: Rheumatoid arthritis
     Route: 048
     Dates: start: 20180130
  34. PREDNISOLONE [Concomitant]
     Active Substance: PREDNISOLONE
     Indication: Rheumatoid arthritis
     Route: 048
     Dates: start: 20180130, end: 20190121
  35. RABIET [Concomitant]
     Indication: Chronic gastritis
     Route: 048
     Dates: start: 20180309, end: 20180729
  36. CENTIREX ADVANCE [Concomitant]
     Indication: Xerophthalmia
     Route: 048
     Dates: start: 20180730, end: 20190121
  37. FENOFIBRATE\PRAVASTATIN [Concomitant]
     Active Substance: FENOFIBRATE\PRAVASTATIN
     Indication: Hyperlipidaemia
     Route: 048
     Dates: start: 20190122, end: 20200816
  38. LEDERCORT [TRIAMCINOLONE] [Concomitant]
     Indication: Rheumatoid arthritis
     Route: 048
     Dates: start: 20190122
  39. LIPICLEAN [Concomitant]
     Indication: Hyperlipidaemia
     Route: 048
     Dates: start: 20200817
  40. ACETAMINOPHEN [Concomitant]
     Active Substance: ACETAMINOPHEN
     Indication: Prophylaxis
     Route: 048
     Dates: start: 20210527, end: 20210527
  41. BISOPROLOL FUMARATE [Concomitant]
     Active Substance: BISOPROLOL FUMARATE
     Indication: Mitral valve incompetence
     Route: 048
     Dates: start: 20211104
  42. CEFACLOR [Concomitant]
     Active Substance: CEFACLOR
     Indication: Urinary incontinence
     Route: 048
     Dates: start: 20211109, end: 20211111
  43. CIMEDINE [Concomitant]
     Indication: Urinary incontinence
     Route: 048
     Dates: start: 20211109, end: 20211111
  44. HISTAL [BIODIASTASE 2000;CALCIUM CARBONATE;GLYCYRRHIZA SPP. ROOT;LIPAS [Concomitant]
     Indication: Urinary incontinence
     Route: 048
     Dates: start: 20211109, end: 20211111
  45. PROPOFOL [Concomitant]
     Active Substance: PROPOFOL
     Indication: Urinary incontinence
     Dosage: INTRAVENOUS
     Dates: start: 20211108, end: 20211108
  46. CEFAZEDONE [Concomitant]
     Active Substance: CEFAZEDONE
     Indication: Urinary incontinence
     Dosage: INTRAVENOUS
     Dates: start: 20211108, end: 20211108
  47. NETILMICIN SULFATE [Concomitant]
     Active Substance: NETILMICIN SULFATE
     Indication: Urinary incontinence
     Dosage: INTRAVENOUS
     Dates: start: 20211108, end: 20211108
  48. NALBUPHINE HYDROCHLORIDE [Concomitant]
     Active Substance: NALBUPHINE HYDROCHLORIDE
     Indication: Urinary incontinence
     Dosage: INTRAVENOUS
     Dates: start: 20211108, end: 20211108
  49. SEVOFLURANE [Concomitant]
     Active Substance: SEVOFLURANE
     Indication: Urinary incontinence
     Dosage: DOSE: 9.5?INHALATION
     Dates: start: 20211108, end: 20211108
  50. COMIRNATY [Concomitant]
     Active Substance: TOZINAMERAN
     Indication: COVID-19 prophylaxis
     Route: 030
     Dates: start: 20211116, end: 20211116

REACTIONS (1)
  - Pneumonia [Fatal]

NARRATIVE: CASE EVENT DATE: 20221108
